FAERS Safety Report 24908670 (Version 1)
Quarter: 2025Q1

REPORT INFORMATION
  Report Type: Spontaneous
  Country: IN (occurrence: IN)
  Receive Date: 20250131
  Receipt Date: 20250131
  Transmission Date: 20250409
  Serious: Yes (Other)
  Sender: Unknown Manufacturer
  Company Number: IN-862174955-ML2025-00413

PATIENT
  Age: 50 Year
  Sex: Male

DRUGS (8)
  1. ATORVASTATIN [Suspect]
     Active Substance: ATORVASTATIN
     Indication: Dyslipidaemia
     Dates: start: 2023
  2. FENOFIBRATE [Suspect]
     Active Substance: FENOFIBRATE
     Indication: Dyslipidaemia
     Dates: start: 2022
  3. FENOFIBRATE [Suspect]
     Active Substance: FENOFIBRATE
     Dates: start: 2023
  4. ROSUVASTATIN [Suspect]
     Active Substance: ROSUVASTATIN
     Indication: Dyslipidaemia
     Dates: start: 2022
  5. ROSUVASTATIN [Suspect]
     Active Substance: ROSUVASTATIN
     Dates: start: 2022
  6. EZETIMIBE [Suspect]
     Active Substance: EZETIMIBE
     Indication: Dyslipidaemia
     Dates: start: 2023
  7. COD LIVER OIL [Suspect]
     Active Substance: COD LIVER OIL
     Indication: Dyslipidaemia
     Dosage: OMEGA 3 FATTY ACIDS TWICE DAILY (2023-2024) PATIENT STARTED ON 300 MG OF COD LIVER OIL, (A NATURAL S
  8. COD LIVER OIL [Suspect]
     Active Substance: COD LIVER OIL
     Dosage: COD LIVER OIL CAPSULES WHEN REINTRODUCED AT A?DOSE OF ONE CAPSULE AT NIGHT
     Dates: start: 2024

REACTIONS (3)
  - Erectile dysfunction [Recovered/Resolved]
  - Loss of libido [Recovered/Resolved]
  - Testicular pain [Recovered/Resolved]

NARRATIVE: CASE EVENT DATE: 20220101
